FAERS Safety Report 8932978 (Version 1)
Quarter: 2012Q4

REPORT INFORMATION
  Report Type: Spontaneous
  Country: US (occurrence: None)
  Receive Date: 20121127
  Receipt Date: 20121127
  Transmission Date: 20130627
  Serious: Yes (Other)
  Sender: FDA-Public Use
  Company Number: None

PATIENT
  Age: 62 Year
  Sex: Female
  Weight: 68.04 kg

DRUGS (2)
  1. PROCRIT [Suspect]
     Dosage: INJECT 40,000 UNITS (1ML) UNDER THE SKIN WEEKLY AS DIRECTED BY YOUR PHYSICIAN
     Dates: start: 20121023
  2. PREDNISONE [Concomitant]

REACTIONS (3)
  - Paraesthesia oral [None]
  - Paraesthesia [None]
  - Insomnia [None]
